FAERS Safety Report 19599094 (Version 2)
Quarter: 2021Q3

REPORT INFORMATION
  Report Type: Report from Study
  Country: PL (occurrence: PL)
  Receive Date: 20210722
  Receipt Date: 20210727
  Transmission Date: 20211014
  Serious: Yes (Other)
  Sender: FDA-Public Use
  Company Number: PL-KARYOPHARM-2021KPT000931

PATIENT
  Age: 52 Year
  Sex: Female

DRUGS (12)
  1. ACARD [Concomitant]
     Dosage: 75 MG
  2. INDAPEN [INDAPAMIDE] [Concomitant]
     Dosage: 5 MG
  3. MILURIT [Concomitant]
     Active Substance: ALLOPURINOL
     Dosage: 100 MG
  4. ZOLEDRONIC ACID [Concomitant]
     Active Substance: ZOLEDRONIC ACID
     Dosage: 4 MG
  5. KETONAL [KETOTIFEN FUMARATE] [Concomitant]
     Active Substance: KETOTIFEN FUMARATE
     Dosage: 100 MG
  6. DEXAMETHASONE. [Concomitant]
     Active Substance: DEXAMETHASONE
     Indication: PLASMA CELL MYELOMA
  7. PIRAMIL [Concomitant]
     Active Substance: RAMIPRIL
     Dosage: 5 MG
  8. ASPARGIN [ASPARTIC ACID] [Concomitant]
     Dosage: 2 DOSAGE FORM
  9. EMANERA [Concomitant]
     Active Substance: ESOMEPRAZOLE MAGNESIUM
     Dosage: 20 MG
  10. HEVIRAN [ACICLOVIR] [Concomitant]
     Active Substance: ACYCLOVIR
     Dosage: 400 MG
  11. ZOLPIDEM [Concomitant]
     Active Substance: ZOLPIDEM TARTRATE
     Dosage: 10 MG
  12. SELINEXOR [Suspect]
     Active Substance: SELINEXOR
     Indication: PLASMA CELL MYELOMA
     Dosage: UNK
     Dates: start: 20210129, end: 20210312

REACTIONS (1)
  - Pneumonia [Unknown]

NARRATIVE: CASE EVENT DATE: 2021
